FAERS Safety Report 4730618-8 (Version None)
Quarter: 2005Q3

REPORT INFORMATION
  Report Type: 
  Country: None (occurrence: None)
  Receive Date: 20050725
  Receipt Date: 20050308
  Transmission Date: 20060218
  Serious: No
  Sender: FDA-Public Use
  Company Number: USA050392628

PATIENT
  Age: 24 Year
  Sex: Female
  Weight: 53 kg

DRUGS (2)
  1. STRATTERA [Suspect]
     Indication: ATTENTION DEFICIT/HYPERACTIVITY DISORDER
     Dosage: 65 MG DAY
     Dates: start: 20050201
  2. LAMICTAL [Concomitant]

REACTIONS (4)
  - CONSTIPATION [None]
  - HEADACHE [None]
  - MENSTRUATION IRREGULAR [None]
  - NEUROLOGICAL SYMPTOM [None]
